FAERS Safety Report 11772439 (Version 2)
Quarter: 2015Q4

REPORT INFORMATION
  Report Type: Spontaneous
  Country: TW (occurrence: TW)
  Receive Date: 20151124
  Receipt Date: 20151125
  Transmission Date: 20160304
  Serious: Yes (Hospitalization)
  Sender: FDA-Public Use
  Company Number: TW-FRESENIUS KABI-FK201506067

PATIENT
  Age: 45 Year
  Sex: Female
  Weight: 42 kg

DRUGS (3)
  1. FUROSEMIDE (MANUFACTURER UNKNOWN) [Suspect]
     Active Substance: FUROSEMIDE
     Indication: SELF-MEDICATION
     Route: 065
  2. NON-STEROIDAL A NTI-INFLAMMATORY DRUGS UNSPECIFIED [Suspect]
     Active Substance: UNSPECIFIED INGREDIENT
     Indication: GOUT
     Route: 065
  3. FUROSEMIDE (MANUFACTURER UNKNOWN) [Suspect]
     Active Substance: FUROSEMIDE
     Indication: WEIGHT CONTROL

REACTIONS (10)
  - Drug dependence [Recovered/Resolved]
  - Gouty arthritis [Unknown]
  - Drug abuse [Recovered/Resolved]
  - Hyperuricaemia [Unknown]
  - Pyelonephritis acute [Unknown]
  - Intentional product misuse [Recovered/Resolved]
  - Nephrolithiasis [Unknown]
  - Tubulointerstitial nephritis [Unknown]
  - Hypokalaemia [Recovered/Resolved]
  - Hypovolaemia [Unknown]
